FAERS Safety Report 4409920-5 (Version None)
Quarter: 2004Q3

REPORT INFORMATION
  Report Type: 
  Country: None (occurrence: None)
  Receive Date: 20040728
  Receipt Date: 20040621
  Transmission Date: 20050211
  Serious: Yes (Death)
  Sender: FDA-Public Use
  Company Number: JP-GLAXOSMITHKLINE-B0336491A

PATIENT
  Age: 48 Year
  Sex: Female
  Weight: 60 kg

DRUGS (10)
  1. PAXIL [Suspect]
     Indication: DEPRESSION
     Route: 048
     Dates: start: 20040310, end: 20040527
  2. ROHYPNOL [Suspect]
     Route: 065
  3. ANAFRANIL [Suspect]
     Indication: DEPRESSION
     Route: 048
  4. VEGETAMIN [Concomitant]
     Indication: INSOMNIA
     Dosage: 2TAB PER DAY
     Route: 048
  5. ARTANE [Concomitant]
     Dosage: .2G PER DAY
     Route: 048
  6. TEGRETOL [Concomitant]
     Indication: EPILEPSY
     Route: 048
     Dates: end: 20040527
  7. SEPAZON [Concomitant]
     Indication: DEPRESSION
     Dosage: 9.99MG PER DAY
     Route: 048
  8. LAXOBERON [Concomitant]
     Dosage: 3ML PER DAY
     Route: 048
  9. LEXOTAN [Concomitant]
     Indication: ANXIETY
     Dosage: 5MG PER DAY
     Route: 048
     Dates: start: 20040517, end: 20040527
  10. ASPIRIN [Concomitant]
     Route: 065

REACTIONS (6)
  - DRUG TOXICITY [None]
  - EPISTAXIS [None]
  - HEADACHE [None]
  - OVERDOSE [None]
  - SUDDEN DEATH [None]
  - TREATMENT NONCOMPLIANCE [None]
